FAERS Safety Report 9842020 (Version 1)
Quarter: 2013Q4

REPORT INFORMATION
  Report Type: Spontaneous
  Country: US (occurrence: None)
  Receive Date: 20131219
  Receipt Date: 20131219
  Transmission Date: 20140711
  Serious: Yes (Other)
  Sender: FDA-Public Use
  Company Number: 163-20785-13051690

PATIENT
  Age: 69 Year
  Sex: Female

DRUGS (1)
  1. THALOMID (THALIDOMIDE) (CAPSULES) [Suspect]
     Indication: PLASMA CELL MYELOMA
     Dosage: 200 MG, 2 IN 1 D, PO
     Route: 048
     Dates: start: 201212

REACTIONS (3)
  - Pulmonary thrombosis [None]
  - Blood pressure increased [None]
  - Memory impairment [None]
